FAERS Safety Report 8243878 (Version 2)
Quarter: 2013Q1

REPORT INFORMATION
  Report Type: Spontaneous
  Country: US (occurrence: US)
  Receive Date: 20111114
  Receipt Date: 20130319
  Transmission Date: 20140127
  Serious: Yes (Hospitalization, Other)
  Sender: FDA-Public Use
  Company Number: US-US-EMD SERONO, INC.-230224M07USA

PATIENT
  Age: 57 Year
  Sex: Female
  Weight: 70 kg

DRUGS (5)
  1. REBIF [Suspect]
     Indication: MULTIPLE SCLEROSIS
     Route: 058
     Dates: start: 20060606, end: 20060818
  2. REBIF [Suspect]
     Route: 058
     Dates: start: 20060818, end: 20070804
  3. REBIF [Suspect]
     Route: 058
     Dates: start: 20070824
  4. DIPENTUM [Concomitant]
     Indication: COLITIS ULCERATIVE
     Route: 065
  5. NITROFURANTOIN [Concomitant]
     Indication: URINARY TRACT INFECTION

REACTIONS (8)
  - Sarcoma uterus [Recovering/Resolving]
  - Bradyphrenia [Unknown]
  - Fall [Unknown]
  - Nausea [Unknown]
  - Pyrexia [Unknown]
  - Injection site hypersensitivity [Unknown]
  - Fatigue [Unknown]
  - Influenza like illness [Unknown]
